FAERS Safety Report 7072782-4 (Version None)
Quarter: 2010Q4

REPORT INFORMATION
  Report Type: 
  Country: None (occurrence: None)
  Receive Date: 20101029
  Receipt Date: 20100312
  Transmission Date: 20110411
  Serious: No
  Sender: FDA-Public Use
  Company Number: A0849999A

PATIENT
  Age: 39 Year
  Sex: Female

DRUGS (4)
  1. ADVAIR DISKUS 100/50 [Suspect]
     Indication: ASTHMA
     Dosage: 1PUFF TWICE PER DAY
     Route: 055
     Dates: start: 20100101, end: 20100309
  2. LEVOTHYROXINE SODIUM [Concomitant]
  3. SINGULAIR [Concomitant]
  4. COUGH SYRUP WITH CODEINE [Concomitant]

REACTIONS (7)
  - DYSPHONIA [None]
  - MALAISE [None]
  - MUSCLE SPASMS [None]
  - PAIN IN EXTREMITY [None]
  - SINUSITIS [None]
  - UPPER RESPIRATORY TRACT INFECTION [None]
  - VOCAL CORD DISORDER [None]
